FAERS Safety Report 5786336-0 (Version None)
Quarter: 2008Q2

REPORT INFORMATION
  Report Type: 
  Country: None (occurrence: None)
  Receive Date: 20080624
  Receipt Date: 20080613
  Transmission Date: 20081010
  Serious: Yes (Other)
  Sender: FDA-Public Use
  Company Number: FR-PFIZER INC-2008050654

PATIENT
  Age: 44 Year
  Sex: Female

DRUGS (3)
  1. CHANTIX [Suspect]
     Indication: SMOKING CESSATION THERAPY
     Dates: start: 20080301, end: 20080401
  2. TAHOR [Suspect]
     Indication: DYSLIPIDAEMIA
  3. TRAMADOL HCL [Concomitant]

REACTIONS (7)
  - ARTHRALGIA [None]
  - ASTHENIA [None]
  - INFLAMMATION [None]
  - JOINT EFFUSION [None]
  - JOINT STIFFNESS [None]
  - MYALGIA [None]
  - PYREXIA [None]
